FAERS Safety Report 12479091 (Version 1)
Quarter: 2016Q2

REPORT INFORMATION
  Report Type: Spontaneous
  Country: US (occurrence: None)
  Receive Date: 20160617
  Receipt Date: 20160617
  Transmission Date: 20160815
  Serious: No
  Sender: FDA-Public Use
  Company Number: None

PATIENT
  Age: 66 Year
  Sex: Female
  Weight: 53.07 kg

DRUGS (10)
  1. LEVOTHYROXINE. [Concomitant]
     Active Substance: LEVOTHYROXINE
  2. AMPLODINE [Concomitant]
  3. CLONAZEPAM. [Concomitant]
     Active Substance: CLONAZEPAM
  4. ATVORSTATIN [Concomitant]
  5. GABAPENTIN. [Suspect]
     Active Substance: GABAPENTIN
     Indication: SEIZURE
     Dosage: 1 PILL 3 TIMES PER DAY 3 TIMES DAILY MOUTH
     Route: 048
  6. OMPRAZOLE [Concomitant]
     Active Substance: OMEPRAZOLE
  7. TRADAZONE [Concomitant]
  8. FLUOXETINE [Concomitant]
     Active Substance: FLUOXETINE HYDROCHLORIDE
  9. GABAPENTIN. [Suspect]
     Active Substance: GABAPENTIN
     Indication: NEURALGIA
     Dosage: 1 PILL 3 TIMES PER DAY 3 TIMES DAILY MOUTH
     Route: 048
  10. BACLOFEN. [Concomitant]
     Active Substance: BACLOFEN

REACTIONS (3)
  - Panic reaction [None]
  - Stress [None]
  - Emotional disorder [None]
